FAERS Safety Report 16632350 (Version 1)
Quarter: 2019Q3

REPORT INFORMATION
  Report Type: Spontaneous
  Country: US (occurrence: US)
  Receive Date: 20190725
  Receipt Date: 20190725
  Transmission Date: 20191004
  Serious: No
  Sender: FDA-Public Use
  Company Number: US-ABBVIE-19S-163-2786876-00

PATIENT
  Age: 62 Year
  Sex: Female

DRUGS (1)
  1. SYNTHROID [Suspect]
     Active Substance: LEVOTHYROXINE SODIUM
     Indication: PRODUCT USED FOR UNKNOWN INDICATION
     Route: 048
     Dates: end: 201812

REACTIONS (6)
  - Fatigue [Unknown]
  - Weight increased [Unknown]
  - Dyspepsia [Unknown]
  - Hair disorder [Unknown]
  - Skin disorder [Unknown]
  - Nail disorder [Unknown]

NARRATIVE: CASE EVENT DATE: 201812
